FAERS Safety Report 6477918-1 (Version None)
Quarter: 2009Q4

REPORT INFORMATION
  Report Type: 
  Country: None (occurrence: None)
  Receive Date: 20091207
  Receipt Date: 20091202
  Transmission Date: 20100525
  Serious: Yes (Hospitalization, Congenital Anomaly)
  Sender: FDA-Public Use
  Company Number: A0677808A

PATIENT
  Sex: Male

DRUGS (26)
  1. PAXIL [Suspect]
     Indication: ANXIETY
     Dosage: 10MG PER DAY
     Dates: start: 20000420, end: 20010101
  2. CHROMAGEN [Concomitant]
     Dates: start: 20001101, end: 20010101
  3. CEFZIL [Concomitant]
     Dates: start: 20010101
  4. ANTIVERT [Concomitant]
     Dates: start: 20010101
  5. PHENERGAN HCL [Concomitant]
     Dates: start: 20010101
  6. ZITHROMAX [Concomitant]
     Dates: start: 20010101
  7. NITROSTAT [Concomitant]
     Dates: start: 19990101
  8. DARVOCET-N 100 [Concomitant]
     Indication: PAIN
     Dates: start: 20010301
  9. DYAZIDE [Concomitant]
     Indication: DIURETIC THERAPY
     Dates: start: 20010301
  10. COVERA-HS [Concomitant]
     Indication: HYPERTENSION
     Dates: start: 20000601, end: 20050101
  11. LEVOXYL [Concomitant]
     Indication: THYROID DISORDER
     Dates: start: 20000601
  12. CEPHALEXIN [Concomitant]
     Dates: start: 20000601
  13. ETODOLAC [Concomitant]
     Dates: start: 20000701
  14. NIASPAN [Concomitant]
     Dates: start: 20000701
  15. HYDROCHLOROTHIAZIDE [Concomitant]
     Dates: start: 20000701
  16. TYLENOL (CAPLET) [Concomitant]
     Dates: start: 19840101
  17. COUGH DROPS [Concomitant]
     Dates: start: 19840101
  18. ALEVE [Concomitant]
     Dates: start: 19840101
  19. IBUPROFEN [Concomitant]
     Dates: start: 19840101, end: 19990101
  20. NYQUIL [Concomitant]
     Dates: start: 19840101, end: 19990101
  21. ASPIRIN [Concomitant]
     Dates: start: 19990101
  22. MULTI-VITAMINS [Concomitant]
     Dates: start: 19960101
  23. ASCORBIC ACID [Concomitant]
     Dates: start: 19960101
  24. CALCIUM [Concomitant]
     Dates: start: 19960101
  25. FOLIC ACID [Concomitant]
     Dates: start: 19960101
  26. FISH OIL [Concomitant]
     Dates: start: 19960101

REACTIONS (4)
  - COARCTATION OF THE AORTA [None]
  - CONGENITAL ANOMALY [None]
  - DRUG EXPOSURE DURING PREGNANCY [None]
  - VENTRICULAR SEPTAL DEFECT [None]
